FAERS Safety Report 6093241-1 (Version None)
Quarter: 2009Q1

REPORT INFORMATION
  Report Type: 
  Country: None (occurrence: None)
  Receive Date: 20090226
  Receipt Date: 20090218
  Transmission Date: 20090719
  Serious: Yes (Other)
  Sender: FDA-Public Use
  Company Number: US-AMGEN-QUU334463

PATIENT
  Sex: Female

DRUGS (2)
  1. ENBREL [Suspect]
     Route: 058
     Dates: start: 20061205
  2. METHOTREXATE [Concomitant]
     Route: 058

REACTIONS (4)
  - AXILLARY MASS [None]
  - MENTAL DISORDER [None]
  - STRESS [None]
  - SWEAT GLAND TUMOUR [None]
